FAERS Safety Report 14773805 (Version 1)
Quarter: 2018Q2

REPORT INFORMATION
  Report Type: Spontaneous
  Country: DE (occurrence: DE)
  Receive Date: 20180418
  Receipt Date: 20180418
  Transmission Date: 20180711
  Serious: Yes (Other)
  Sender: FDA-Public Use
  Company Number: DE-ASTRAZENECA-2018SE46395

PATIENT
  Age: 1 Day
  Sex: Male
  Weight: 4.8 kg

DRUGS (4)
  1. SEROQUEL XR [Suspect]
     Active Substance: QUETIAPINE FUMARATE
     Indication: BIPOLAR DISORDER
     Dosage: 800 [MG/D ]/ INITIAL 800MG/D, DOSAGE REDUCED TO 2X 300MG/D FROM WEEK 19+6
     Route: 064
     Dates: start: 20161102, end: 20170809
  2. VIGANTOLETTEN [Concomitant]
     Active Substance: CHOLECALCIFEROL
     Indication: PROPHYLAXIS
     Dosage: 500 [IE/D ] DAILY
     Route: 064
     Dates: start: 20161102, end: 20170809
  3. FOLIC ACID. [Concomitant]
     Active Substance: FOLIC ACID
     Indication: PROPHYLAXIS OF NEURAL TUBE DEFECT
     Dosage: 0.4 [MG/D ]
     Route: 064
  4. EUTHYROX [Concomitant]
     Active Substance: LEVOTHYROXINE SODIUM
     Indication: AUTOIMMUNE THYROIDITIS
     Dosage: 175 [???G/D ] DAILY
     Route: 064
     Dates: start: 20161102, end: 20170809

REACTIONS (4)
  - Respiratory disorder neonatal [Recovered/Resolved]
  - Agitation neonatal [Recovered/Resolved]
  - Maternal exposure timing unspecified [Unknown]
  - Large for dates baby [Recovering/Resolving]

NARRATIVE: CASE EVENT DATE: 20170809
